FAERS Safety Report 4846117-9 (Version None)
Quarter: 2005Q4

REPORT INFORMATION
  Report Type: 
  Country: None (occurrence: None)
  Receive Date: 20051201
  Receipt Date: 20051118
  Transmission Date: 20060501
  Serious: Yes (Death)
  Sender: FDA-Public Use
  Company Number: 2005152041

PATIENT
  Age: 60 Year
  Sex: Male

DRUGS (2)
  1. XALATAN [Suspect]
     Indication: GLAUCOMA
     Dosage: 1 DROP, 1 IN 1 D, OPHTHALMIC
     Route: 047
     Dates: start: 20030101, end: 20050601
  2. XALACOM (LANTANOPROST, TIMOLOL) [Suspect]
     Indication: GLAUCOMA
     Dosage: 1 DROP, 1 IN 1 D, OPHTHALMIC
     Route: 047
     Dates: start: 20030101, end: 20050601

REACTIONS (3)
  - CARDIAC DISORDER [None]
  - CHEST PAIN [None]
  - INTRAOCULAR PRESSURE TEST ABNORMAL [None]
